FAERS Safety Report 4415470-2 (Version None)
Quarter: 2004Q3

REPORT INFORMATION
  Report Type: 
  Country: None (occurrence: None)
  Receive Date: 20040730
  Receipt Date: 20040719
  Transmission Date: 20050211
  Serious: Yes (Hospitalization)
  Sender: FDA-Public Use
  Company Number: 2004202652PL

PATIENT
  Age: 12 Year
  Sex: Male
  Weight: 43 kg

DRUGS (6)
  1. GENOTROPIN [Suspect]
     Indication: HYPOPITUITARISM
     Dosage: 2 MG, QD, SUBCUTANEOUS
     Route: 058
     Dates: start: 20040210, end: 20040219
  2. GENOTROPIN [Suspect]
     Indication: HYPOPITUITARISM
     Dosage: 2 MG, QD, SUBCUTANEOUS
     Route: 058
     Dates: start: 20040708
  3. SALMETEROL (SALMETEROL) [Concomitant]
  4. FLUTICASONE PROPIOINATE (FLUTICASONE PROPIONATE) [Concomitant]
  5. LORATADINE [Concomitant]
  6. BUDESONIDE [Concomitant]

REACTIONS (3)
  - ANAPHYLACTIC SHOCK [None]
  - BRADYCARDIA [None]
  - FEELING ABNORMAL [None]
